FAERS Safety Report 25410222 (Version 1)
Quarter: 2025Q2

REPORT INFORMATION
  Report Type: Spontaneous
  Country: US (occurrence: US)
  Receive Date: 20250608
  Receipt Date: 20250608
  Transmission Date: 20250717
  Serious: No
  Sender: SANOFI AVENTIS
  Company Number: US-SA-2025SA161145

PATIENT
  Age: 3 Year
  Sex: Male

DRUGS (5)
  1. DUPIXENT [Suspect]
     Active Substance: DUPILUMAB
     Indication: Dermatitis atopic
     Route: 058
     Dates: start: 20241213
  2. ALBUTEROL [Concomitant]
     Active Substance: ALBUTEROL
  3. ALCLOMETASONE [Concomitant]
     Active Substance: ALCLOMETASONE
  4. ZYRTEC [Concomitant]
     Active Substance: CETIRIZINE HYDROCHLORIDE
  5. STANNOUS FLUORIDE [Concomitant]
     Active Substance: STANNOUS FLUORIDE

REACTIONS (2)
  - Asthma [Unknown]
  - Fall [Unknown]
